FAERS Safety Report 13434034 (Version 2)
Quarter: 2017Q2

REPORT INFORMATION
  Report Type: Spontaneous
  Country: US (occurrence: US)
  Receive Date: 20170413
  Receipt Date: 20170519
  Transmission Date: 20170830
  Serious: No
  Sender: FDA-Public Use
  Company Number: US-PFIZER INC-2017155456

PATIENT
  Age: 53 Year
  Sex: Female
  Weight: 73 kg

DRUGS (7)
  1. DESVENLAFAXINE SUCCINATE MONOHYDRATE [Suspect]
     Active Substance: DESVENLAFAXINE SUCCINATE
     Indication: ANXIETY
  2. WELLBUTRIN XL [Concomitant]
     Active Substance: BUPROPION HYDROCHLORIDE
     Indication: DEPRESSION
     Dosage: 150 ML, 1X/DAY (QD)
     Dates: start: 20160719
  3. VISTARIL [Concomitant]
     Active Substance: HYDROXYZINE PAMOATE
     Indication: ANXIETY
     Dosage: 25 G, AS NEEDED (BID PRN)
     Dates: start: 201702
  4. DESVENLAFAXINE SUCCINATE MONOHYDRATE [Suspect]
     Active Substance: DESVENLAFAXINE SUCCINATE
     Indication: DEPRESSION
     Dosage: 100 MG, 1X/DAY
     Route: 048
     Dates: start: 201703
  5. DESVENLAFAXINE SUCCINATE MONOHYDRATE [Suspect]
     Active Substance: DESVENLAFAXINE SUCCINATE
     Indication: DEPRESSED MOOD
  6. VISTARIL [Concomitant]
     Active Substance: HYDROXYZINE PAMOATE
     Indication: INSOMNIA
     Dosage: 50 G, UNK (1 TO 2 HS)
     Dates: start: 201702
  7. KLONOPIN [Concomitant]
     Active Substance: CLONAZEPAM
     Indication: ANXIETY
     Dosage: UNK (2 TO 3 QD)
     Dates: start: 2008

REACTIONS (10)
  - Muscle spasms [Not Recovered/Not Resolved]
  - Withdrawal syndrome [Not Recovered/Not Resolved]
  - Urticaria [Unknown]
  - Drug effect incomplete [Unknown]
  - Muscle twitching [Not Recovered/Not Resolved]
  - Dyspnoea [Recovered/Resolved]
  - Tremor [Unknown]
  - Anxiety [Recovered/Resolved]
  - Nervousness [Not Recovered/Not Resolved]
  - Headache [Recovered/Resolved]

NARRATIVE: CASE EVENT DATE: 201703
